FAERS Safety Report 4474286-1 (Version None)
Quarter: 2004Q4

REPORT INFORMATION
  Report Type: 
  Country: None (occurrence: None)
  Receive Date: 20041012
  Receipt Date: 20041012
  Transmission Date: 20050328
  Serious: No
  Sender: FDA-Public Use
  Company Number: None

PATIENT
  Age: 24 Year
  Sex: Male
  Weight: 68.0396 kg

DRUGS (1)
  1. COLD-EEZE NASAL SPRAY [Suspect]
     Indication: NASOPHARYNGITIS
     Dosage: 1 DOSE ONCE NASAL
     Route: 045
     Dates: start: 20041007, end: 20041007

REACTIONS (1)
  - NASAL DISCOMFORT [None]
